FAERS Safety Report 25787471 (Version 1)
Quarter: 2025Q3

REPORT INFORMATION
  Report Type: Spontaneous
  Country: JP (occurrence: JP)
  Receive Date: 20250910
  Receipt Date: 20250910
  Transmission Date: 20251021
  Serious: Yes (Hospitalization)
  Sender: AMGEN
  Company Number: JP-AMGEN-JPNSP2025175956

PATIENT
  Age: 67 Year
  Sex: Female

DRUGS (5)
  1. IMDELLTRA [Suspect]
     Active Substance: TARLATAMAB-DLLE
     Indication: Small cell lung cancer
     Route: 040
     Dates: start: 20250618
  2. IMDELLTRA [Suspect]
     Active Substance: TARLATAMAB-DLLE
     Route: 040
     Dates: start: 20250625
  3. IMDELLTRA [Suspect]
     Active Substance: TARLATAMAB-DLLE
     Route: 040
     Dates: start: 20250702
  4. IMDELLTRA [Suspect]
     Active Substance: TARLATAMAB-DLLE
     Route: 040
     Dates: start: 202507
  5. IMDELLTRA [Suspect]
     Active Substance: TARLATAMAB-DLLE
     Route: 040
     Dates: start: 20250813

REACTIONS (3)
  - Cytokine release syndrome [Recovered/Resolved]
  - Small cell lung cancer [Unknown]
  - Ageusia [Not Recovered/Not Resolved]

NARRATIVE: CASE EVENT DATE: 20250618
